FAERS Safety Report 15116585 (Version 1)
Quarter: 2018Q3

REPORT INFORMATION
  Report Type: Spontaneous
  Country: FR (occurrence: FR)
  Receive Date: 20180706
  Receipt Date: 20180706
  Transmission Date: 20181010
  Serious: Yes (Life-Threatening, Hospitalization, Other)
  Sender: FDA-Public Use
  Company Number: FR-TEVA-2018-FR-922291

PATIENT
  Age: 65 Year
  Sex: Male
  Weight: 68 kg

DRUGS (6)
  1. ACIDE ACETYLSALICYLIQUE [Concomitant]
     Active Substance: ASPIRIN
     Route: 065
  2. BISOPROLOL (FUMARATE DE) [Suspect]
     Active Substance: BISOPROLOL FUMARATE
     Indication: MYOCARDIAL INFARCTION
     Dosage: 1.25 MILLIGRAM DAILY;
     Route: 048
     Dates: start: 20180522, end: 20180523
  3. BRILIQUE 90 MG, COMPRIM? PELLICUL? [Suspect]
     Active Substance: TICAGRELOR
     Dosage: 1 DOSAGE FORMS DAILY;
     Route: 048
     Dates: start: 20180522
  4. RAMIPRIL. [Concomitant]
     Active Substance: RAMIPRIL
     Indication: MYOCARDIAL INFARCTION
     Dosage: 1.25 MILLIGRAM DAILY;
     Route: 048
     Dates: start: 20180522
  5. ATORVASTATINE [Concomitant]
     Active Substance: ATORVASTATIN
     Route: 048
     Dates: start: 20180522
  6. ESOMEPRAZOLE [Concomitant]
     Active Substance: ESOMEPRAZOLE
     Dosage: 20 MILLIGRAM DAILY;
     Route: 048

REACTIONS (5)
  - Sinus bradycardia [Recovered/Resolved]
  - Electrocardiogram QT prolonged [Recovered/Resolved]
  - Ventricular tachycardia [Recovered/Resolved]
  - Ventricular arrhythmia [Recovered/Resolved]
  - Torsade de pointes [Recovered/Resolved]

NARRATIVE: CASE EVENT DATE: 20180522
